FAERS Safety Report 16266106 (Version 1)
Quarter: 2019Q2

REPORT INFORMATION
  Report Type: Spontaneous
  Country: CN (occurrence: CN)
  Receive Date: 20190502
  Receipt Date: 20190502
  Transmission Date: 20190711
  Serious: No
  Sender: FDA-Public Use
  Company Number: CN-B. BRAUN MEDICAL INC.-2066551

PATIENT
  Age: 40 Year
  Sex: Male
  Weight: 76 kg

DRUGS (1)
  1. HESPAN [Suspect]
     Active Substance: HETASTARCH\SODIUM CHLORIDE
     Route: 041
     Dates: start: 20190304, end: 20190304

REACTIONS (2)
  - Rash [Recovered/Resolved]
  - Pruritus [Recovered/Resolved]

NARRATIVE: CASE EVENT DATE: 20190304
